FAERS Safety Report 9485803 (Version 1)
Quarter: 2013Q3

REPORT INFORMATION
  Report Type: Spontaneous
  Country: FR (occurrence: None)
  Receive Date: 20130813
  Receipt Date: 20130813
  Transmission Date: 20140515
  Serious: Yes (Death, Hospitalization, Other)
  Sender: FDA-Public Use
  Company Number: AUR-APL-2013-06558

PATIENT
  Age: 86 Year
  Sex: Female

DRUGS (10)
  1. BISOPROLOL (BISOPROLOL) [Suspect]
     Indication: HYPERTENSION
     Route: 048
  2. CORDARONE (AMIODARONE HYDROCHLORIDE)/ORAL/TABLET/200 MILLIGRAMS(S) [Suspect]
     Indication: ARRHYTHMIA
     Dosage: 5 DAYS A WEEK
     Route: 048
  3. CANDESARTAN CILEXETIL (CANDESARTAN CILEXETIL) [Suspect]
     Indication: HYPERTENSION
     Route: 048
  4. FUROSEMIDE (FUROSEMIDE) [Suspect]
     Indication: HYPERTENSION
     Route: 048
  5. AMOXICILLIN (AMOXICILLIN) [Suspect]
     Indication: URINARY TRACT INFECTION
     Dates: start: 20130529, end: 20130606
  6. PREVISCAN [Suspect]
     Indication: PRODUCT USED FOR UNKNOWN INDICATION
     Route: 048
     Dates: start: 20130604
  7. GLUCOPHAGE [Suspect]
     Indication: TYPE 2 DIABETES MELLITUS
     Route: 048
  8. DOMPERIDONE (DOMPERIDONE) [Suspect]
     Indication: PRODUCT USED FOR UNKNOWN INDICATION
     Route: 048
  9. LANSOPRAZOLE (LANSOPRAZOLE) [Suspect]
     Indication: PRODUCT USED FOR UNKNOWN INDICATION
     Route: 048
  10. PARACETAMOL [Suspect]
     Indication: PAIN
     Route: 048

REACTIONS (13)
  - International normalised ratio increased [None]
  - Urinary tract infection [None]
  - Overdose [None]
  - General physical health deterioration [None]
  - Dehydration [None]
  - Cognitive disorder [None]
  - Hyponatraemia [None]
  - Somnolence [None]
  - Hypokalaemia [None]
  - Diarrhoea [None]
  - Renal failure acute [None]
  - Pyrexia [None]
  - Cardio-respiratory arrest [None]
